FAERS Safety Report 20526757 (Version 1)
Quarter: 2022Q1

REPORT INFORMATION
  Report Type: Spontaneous
  Country: CA (occurrence: None)
  Receive Date: 20220227
  Receipt Date: 20220227
  Transmission Date: 20220423
  Serious: Yes (Disabling)
  Sender: FDA-Public Use
  Company Number: None

PATIENT
  Age: 52 Year
  Sex: Female
  Weight: 67.5 kg

DRUGS (11)
  1. ABILIFY [Suspect]
     Active Substance: ARIPIPRAZOLE
     Indication: Bipolar I disorder
     Dosage: OTHER FREQUENCY : EVERY 5 TO 6 WEEKS;?
     Route: 030
  2. EFFEXOR [Concomitant]
     Active Substance: VENLAFAXINE HYDROCHLORIDE
  3. LYRICA [Concomitant]
     Active Substance: PREGABALIN
  4. METHYLPHENIDATE HYDROCHLORIDE [Concomitant]
     Active Substance: METHYLPHENIDATE HYDROCHLORIDE
  5. CLONAZEPAM [Concomitant]
     Active Substance: CLONAZEPAM
  6. ZOPICLONE [Concomitant]
     Active Substance: ZOPICLONE
  7. PROTEIN POWDER [Concomitant]
  8. VITAMIN B12 [Concomitant]
     Active Substance: CYANOCOBALAMIN
  9. VITAMIN D [Concomitant]
     Active Substance: VITAMIN D NOS
  10. VITAMIN C [Concomitant]
     Active Substance: ASCORBIC ACID
  11. COLLAGEN [Concomitant]
     Active Substance: COLLAGEN

REACTIONS (17)
  - Rash [None]
  - Muscle twitching [None]
  - Peripheral swelling [None]
  - Trigger finger [None]
  - Muscle rigidity [None]
  - Muscle spasms [None]
  - Pain [None]
  - Pain in extremity [None]
  - Neuralgia [None]
  - Weight increased [None]
  - Alopecia [None]
  - Scar [None]
  - Nerve injury [None]
  - Sedation [None]
  - Emotional disorder [None]
  - Compulsive shopping [None]
  - Muscle tightness [None]

NARRATIVE: CASE EVENT DATE: 20211210
